FAERS Safety Report 7463201-4 (Version None)
Quarter: 2011Q2

REPORT INFORMATION
  Report Type: 
  Country: None (occurrence: None)
  Receive Date: 20110506
  Receipt Date: 20110504
  Transmission Date: 20111010
  Serious: No
  Sender: FDA-Public Use
  Company Number: AU-ROCHE-764967

PATIENT
  Sex: Female

DRUGS (4)
  1. SULFASALAZINE [Concomitant]
  2. METHOTREXATE [Concomitant]
  3. ACTEMRA [Suspect]
     Indication: RHEUMATOID ARTHRITIS
     Dosage: INFUSION NUMBER 3 ON 11 MAR 2011
     Route: 042
     Dates: start: 20110101
  4. PLAQUENIL [Concomitant]

REACTIONS (2)
  - DIZZINESS [None]
  - OROPHARYNGEAL PAIN [None]
